FAERS Safety Report 7732072-0 (Version None)
Quarter: 2011Q3

REPORT INFORMATION
  Report Type: 
  Country: None (occurrence: None)
  Receive Date: 20110906
  Receipt Date: 20110727
  Transmission Date: 20111222
  Serious: No
  Sender: FDA-Public Use
  Company Number: US-AMGEN-USASP2011029950

PATIENT
  Age: 81 Year
  Sex: Female

DRUGS (8)
  1. PROLIA [Suspect]
     Indication: OSTEOPOROSIS POSTMENOPAUSAL
     Dosage: 60 MG, Q6MO
     Dates: start: 20110412
  2. LISINOPRIL [Concomitant]
  3. PAROXETINE HCL [Concomitant]
  4. LEVOXYL [Concomitant]
  5. SIMVASTATIN [Concomitant]
  6. IBUPROFEN [Concomitant]
     Dosage: UNK
  7. ALPHAGAN [Concomitant]
     Dosage: UNK %, UNK
  8. TRAVATAN [Concomitant]
     Dosage: UNK %, UNK

REACTIONS (2)
  - CELLULITIS [None]
  - PYREXIA [None]
